FAERS Safety Report 9452426 (Version 2)
Quarter: 2014Q2

REPORT INFORMATION
  Report Type: Spontaneous
  Country: US (occurrence: US)
  Receive Date: 20130812
  Receipt Date: 20140407
  Transmission Date: 20141212
  Serious: Yes (Hospitalization, Other)
  Sender: FDA-Public Use
  Company Number: US-JNJFOC-20130719207

PATIENT
  Sex: Male

DRUGS (1)
  1. XARELTO [Suspect]
     Indication: DEEP VEIN THROMBOSIS
     Route: 048

REACTIONS (2)
  - Arterial thrombosis [Unknown]
  - International normalised ratio increased [Unknown]
